FAERS Safety Report 5915364-7 (Version None)
Quarter: 2008Q4

REPORT INFORMATION
  Report Type: 
  Country: None (occurrence: None)
  Receive Date: 20081010
  Receipt Date: 20081009
  Transmission Date: 20090506
  Serious: Yes (Death)
  Sender: FDA-Public Use
  Company Number: DE-WYE-G01944408

PATIENT

DRUGS (1)
  1. TYGACIL [Suspect]
     Indication: ABDOMINAL INFECTION
     Dosage: UNKNOWN
     Route: 042

REACTIONS (2)
  - CONCOMITANT DISEASE AGGRAVATED [None]
  - HEPATIC FAILURE [None]
